FAERS Safety Report 23531334 (Version 1)
Quarter: 2024Q1

REPORT INFORMATION
  Report Type: Spontaneous
  Country: US (occurrence: US)
  Receive Date: 20240216
  Receipt Date: 20240216
  Transmission Date: 20240409
  Serious: No
  Sender: FDA-Public Use
  Company Number: US-PHARMAAND GMBH-2023PHR00153

PATIENT
  Age: 66 Year
  Sex: Male

DRUGS (7)
  1. RUBRACA [Suspect]
     Active Substance: RUCAPARIB CAMSYLATE
     Indication: Pancreatic carcinoma
     Route: 048
     Dates: start: 20230731
  2. RUBRACA [Suspect]
     Active Substance: RUCAPARIB CAMSYLATE
     Dosage: 1000 MILLIGRAM EVERY 1 DAY(S) ONE 300MG TABLET WITH ONE 200 M
     Route: 048
  3. CREON [Concomitant]
     Active Substance: PANCRELIPASE AMYLASE\PANCRELIPASE LIPASE\PANCRELIPASE PROTEASE
  4. VITAMINS [Concomitant]
     Active Substance: VITAMINS
  5. OMEPRAZOLE [Concomitant]
     Active Substance: OMEPRAZOLE
  6. PACERONE [Concomitant]
     Active Substance: AMIODARONE HYDROCHLORIDE
  7. XARELTO [Concomitant]
     Active Substance: RIVAROXABAN

REACTIONS (4)
  - White blood cell count decreased [Not Recovered/Not Resolved]
  - Red blood cell count decreased [Not Recovered/Not Resolved]
  - Platelet count decreased [Not Recovered/Not Resolved]
  - Off label use [Unknown]

NARRATIVE: CASE EVENT DATE: 20230731
